FAERS Safety Report 16687598 (Version 2)
Quarter: 2019Q4

REPORT INFORMATION
  Report Type: Spontaneous
  Country: US (occurrence: US)
  Receive Date: 20190809
  Receipt Date: 20191017
  Transmission Date: 20200122
  Serious: No
  Sender: FDA-Public Use
  Company Number: US-JNJFOC-20190809269

PATIENT
  Age: 50 Year
  Sex: Female
  Weight: 98.52 kg

DRUGS (1)
  1. REMICADE [Suspect]
     Active Substance: INFLIXIMAB
     Indication: RETINITIS
     Route: 042
     Dates: start: 2012

REACTIONS (3)
  - Product use in unapproved indication [Unknown]
  - Rash macular [Not Recovered/Not Resolved]
  - Off label use [Unknown]

NARRATIVE: CASE EVENT DATE: 201812
